FAERS Safety Report 9759965 (Version 2)
Quarter: 2014Q1

REPORT INFORMATION
  Report Type: Spontaneous
  Country: US (occurrence: US)
  Receive Date: 20131216
  Receipt Date: 20140108
  Transmission Date: 20141002
  Serious: No
  Sender: FDA-Public Use
  Company Number: US-B.I. PHARMACEUTICALS,INC./RIDGEFIELD-2013-BI-40175BP

PATIENT
  Age: 68 Year
  Sex: Male
  Weight: 104 kg

DRUGS (15)
  1. COMBIVENT [Suspect]
     Indication: ASTHMA
     Dosage: STRENGTH: 20 MCG / 100 MCG; DAILY DOSE: 80 MCG/400 MCG
     Route: 055
     Dates: start: 20131201
  2. COMBIVENT [Suspect]
     Dates: start: 20131010
  3. ALPRAZOLAM [Concomitant]
     Indication: ANXIETY
  4. LEVEMIR [Concomitant]
  5. METFORMIN [Concomitant]
  6. NOVOLOG [Concomitant]
  7. AMLODIPINE [Concomitant]
  8. LISINOPRIL [Concomitant]
  9. METOPROLOL SUCC ER [Concomitant]
  10. SIMVASTATIN [Concomitant]
  11. ZOLPIDEM [Concomitant]
  12. TYLENOL-3 [Concomitant]
  13. CYCLOBENZAPRINE [Concomitant]
  14. TRAMADOL [Concomitant]
  15. GABAPENTIN [Concomitant]

REACTIONS (2)
  - Choking [Recovered/Resolved]
  - Off label use [Unknown]
